FAERS Safety Report 5248516-2 (Version None)
Quarter: 2007Q1

REPORT INFORMATION
  Report Type: 
  Country: None (occurrence: None)
  Receive Date: 20070227
  Receipt Date: 20070215
  Transmission Date: 20070707
  Serious: Yes (Other)
  Sender: FDA-Public Use
  Company Number: BR-PFIZER INC-2007012596

PATIENT
  Age: 42 Year
  Sex: Female
  Weight: 58 kg

DRUGS (2)
  1. DEPO-PROVERA [Suspect]
     Indication: UTERINE LEIOMYOMA
  2. DEPO-PROVERA [Suspect]
     Indication: MENSTRUAL DISCOMFORT

REACTIONS (9)
  - ABDOMINAL PAIN UPPER [None]
  - ANGIOPATHY [None]
  - DYSMENORRHOEA [None]
  - GASTROOESOPHAGEAL REFLUX DISEASE [None]
  - MENORRHAGIA [None]
  - PAIN IN EXTREMITY [None]
  - SWELLING [None]
  - VOMITING [None]
  - WEIGHT INCREASED [None]
